FAERS Safety Report 4304673-3 (Version None)
Quarter: 2004Q1

REPORT INFORMATION
  Report Type: 
  Country: None (occurrence: None)
  Receive Date: 20040226
  Receipt Date: 20031113
  Transmission Date: 20041129
  Serious: No
  Sender: FDA-Public Use
  Company Number: US-GLAXOSMITHKLINE-A0439615A

PATIENT
  Age: 38 Year
  Sex: Female

DRUGS (2)
  1. WELLBUTRIN [Suspect]
     Dosage: 300MGM PER DAY
     Route: 048
     Dates: start: 20031108
  2. ZYBAN [Suspect]
     Route: 048
     Dates: start: 20010101, end: 20010101

REACTIONS (3)
  - DYSGEUSIA [None]
  - INSOMNIA [None]
  - MYALGIA [None]
